FAERS Safety Report 4503390-4 (Version None)
Quarter: 2004Q4

REPORT INFORMATION
  Report Type: 
  Country: None (occurrence: None)
  Receive Date: 20041112
  Receipt Date: 20041102
  Transmission Date: 20050328
  Serious: Yes (Life-Threatening, Hospitalization)
  Sender: FDA-Public Use
  Company Number: 2004242871GB

PATIENT
  Sex: Female
  Weight: 97 kg

DRUGS (14)
  1. CELEBREX [Suspect]
     Indication: ARTHRITIS
     Dosage: 200 MG, ORAL
     Route: 048
     Dates: start: 20001001, end: 20040901
  2. ACETYLSALICYLIC ACID [Concomitant]
  3. SULFASALAZINE [Concomitant]
  4. BENDROFLUAZIDE [Concomitant]
  5. ENALAPRIL (ENALAPRIL) [Concomitant]
  6. OMEPRAZOLE [Concomitant]
  7. FLUOXETINE [Concomitant]
  8. SALBUTAMOL (SALBUTAMOL)INHALER [Concomitant]
  9. PULMICORT [Concomitant]
  10. ATROVENT [Concomitant]
  11. TEMAZEPAM [Concomitant]
  12. METFORMIN [Concomitant]
  13. FOLIC ACID [Concomitant]
  14. METHOTREXATE [Concomitant]

REACTIONS (2)
  - CARDIAC FAILURE [None]
  - CONGESTIVE CARDIOMYOPATHY [None]
